FAERS Safety Report 6051937-1 (Version None)
Quarter: 2009Q1

REPORT INFORMATION
  Report Type: 
  Country: None (occurrence: None)
  Receive Date: 20090122
  Receipt Date: 20090122
  Transmission Date: 20090719
  Serious: Yes (Hospitalization)
  Sender: FDA-Public Use
  Company Number: None

PATIENT
  Age: 58 Year
  Sex: Female

DRUGS (1)
  1. AZITHROMYCIN [Suspect]
     Dosage: 250 MG PO DAILY
     Route: 048
     Dates: start: 20081111

REACTIONS (5)
  - ASTHENIA [None]
  - BLOOD MAGNESIUM ABNORMAL [None]
  - ELECTROLYTE IMBALANCE [None]
  - SYNCOPE [None]
  - TORSADE DE POINTES [None]
